FAERS Safety Report 24608641 (Version 1)
Quarter: 2024Q4

REPORT INFORMATION
  Report Type: Spontaneous
  Country: US (occurrence: None)
  Receive Date: 20241112
  Receipt Date: 20241112
  Transmission Date: 20250115
  Serious: Yes (Life-Threatening, Other)
  Sender: Public
  Company Number: None

PATIENT
  Age: 76 Year
  Sex: Female
  Weight: 48.15 kg

DRUGS (6)
  1. METOPROLOL SUCCINATE [Suspect]
     Active Substance: METOPROLOL SUCCINATE
     Indication: Hypertension
     Dosage: FREQUENCY : DAILY;?
     Route: 048
     Dates: end: 20241018
  2. AMLODIPINE [Concomitant]
     Active Substance: AMLODIPINE BESYLATE
  3. Multivitmin [Concomitant]
  4. CALCIUM [Concomitant]
     Active Substance: CALCIUM
  5. GLUCOSAMINE [Concomitant]
     Active Substance: GLUCOSAMINE
  6. Chrondroitin [Concomitant]

REACTIONS (17)
  - Headache [None]
  - Nausea [None]
  - Dyspnoea [None]
  - Suffocation feeling [None]
  - Stress [None]
  - Insomnia [None]
  - Gait disturbance [None]
  - Arthropathy [None]
  - Mental impairment [None]
  - Peripheral swelling [None]
  - Hot flush [None]
  - Palpitations [None]
  - Dysgeusia [None]
  - Fatigue [None]
  - Tinnitus [None]
  - Dry mouth [None]
  - Visual impairment [None]

NARRATIVE: CASE EVENT DATE: 20241015
